FAERS Safety Report 6942772-8 (Version None)
Quarter: 2010Q3

REPORT INFORMATION
  Report Type: 
  Country: None (occurrence: None)
  Receive Date: 20100826
  Receipt Date: 20100816
  Transmission Date: 20110219
  Serious: Yes (Hospitalization)
  Sender: FDA-Public Use
  Company Number: US-MYLANLABS-2010S1013826

PATIENT
  Age: 14 Year
  Sex: Male
  Weight: 65.77 kg

DRUGS (1)
  1. AMNESTEEM [Suspect]
     Indication: ACNE CYSTIC
     Route: 048
     Dates: start: 20100601, end: 20100722

REACTIONS (6)
  - ACNE [None]
  - CHILLS [None]
  - CHROMATURIA [None]
  - FATIGUE [None]
  - PRURITUS [None]
  - STAPHYLOCOCCAL SKIN INFECTION [None]
